FAERS Safety Report 10866407 (Version 1)
Quarter: 2015Q1

REPORT INFORMATION
  Report Type: Spontaneous
  Country: US (occurrence: None)
  Receive Date: 20150219
  Receipt Date: 20150219
  Transmission Date: 20150721
  Serious: Yes (Life-Threatening)
  Sender: FDA-Public Use
  Company Number: None

PATIENT
  Age: 52 Year
  Sex: Male
  Weight: 78 kg

DRUGS (2)
  1. DICLOFENAC SODIUM 75 MG [Suspect]
     Active Substance: DICLOFENAC SODIUM
     Dosage: 1 TWICE DAILY TAKEN BY MOUTH
     Route: 048
  2. DICLOFENAC SODIUM 75 MG [Suspect]
     Active Substance: DICLOFENAC SODIUM
     Indication: SCIATICA
     Dosage: 1 TWICE DAILY TAKEN BY MOUTH
     Route: 048

REACTIONS (5)
  - Myalgia [None]
  - Asthenia [None]
  - Pallor [None]
  - Biopsy bone marrow abnormal [None]
  - Red blood cell count decreased [None]
